FAERS Safety Report 6155309-0 (Version None)
Quarter: 2009Q2

REPORT INFORMATION
  Report Type: 
  Country: None (occurrence: None)
  Receive Date: 20090415
  Receipt Date: 20090413
  Transmission Date: 20091009
  Serious: Yes (Hospitalization)
  Sender: FDA-Public Use
  Company Number: US-BAYER-200833003NA

PATIENT
  Age: 18 Year
  Sex: Female

DRUGS (4)
  1. YAZ [Suspect]
     Indication: PREMENSTRUAL SYNDROME
     Route: 048
     Dates: start: 20070601
  2. YAZ [Suspect]
     Route: 048
     Dates: start: 20080701, end: 20080901
  3. LOESTRIN FE 1/20 [Concomitant]
  4. TRILEPTAL [Concomitant]
     Dosage: UNIT DOSE: 150 MG

REACTIONS (6)
  - ABDOMINAL PAIN [None]
  - NAUSEA [None]
  - OFF LABEL USE [None]
  - PANCREATITIS [None]
  - ULCER [None]
  - VOMITING [None]
